FAERS Safety Report 6694519-0 (Version None)
Quarter: 2010Q2

REPORT INFORMATION
  Report Type: 
  Country: None (occurrence: None)
  Receive Date: 20100423
  Receipt Date: 20100414
  Transmission Date: 20101027
  Serious: Yes (Other)
  Sender: FDA-Public Use
  Company Number: CA-JNJFOC-20090801311

PATIENT
  Sex: Female
  Weight: 57.3 kg

DRUGS (3)
  1. REMICADE [Suspect]
     Indication: COLITIS ULCERATIVE
     Dosage: 100 MG/VIAL/18 DOSES
     Route: 042
  2. BENADRYL [Concomitant]
     Indication: PREMEDICATION
  3. SOLU-CORTEF [Concomitant]
     Indication: PREMEDICATION

REACTIONS (3)
  - HAEMATOCHEZIA [None]
  - HAEMOPTYSIS [None]
  - INCREASED UPPER AIRWAY SECRETION [None]
